FAERS Safety Report 7646488-4 (Version None)
Quarter: 2011Q3

REPORT INFORMATION
  Report Type: 
  Country: None (occurrence: None)
  Receive Date: 20110801
  Receipt Date: 20110721
  Transmission Date: 20111222
  Serious: Yes (Death)
  Sender: FDA-Public Use
  Company Number: IE-AMGEN-IRLSP2011035955

PATIENT
  Age: 78 Year
  Sex: Female

DRUGS (9)
  1. GALFER [Concomitant]
  2. ASPIRIN [Concomitant]
  3. LASIX [Concomitant]
  4. CARDICOR [Concomitant]
  5. IRBESARTAN [Concomitant]
  6. ISOSORBIDE DINITRATE [Concomitant]
  7. ARANESP [Suspect]
     Indication: RENAL FAILURE CHRONIC
     Dosage: 20 A?G, Q2WK
     Route: 058
     Dates: start: 20110630, end: 20110714
  8. CARDURA [Concomitant]
  9. CRESTOR [Concomitant]

REACTIONS (2)
  - DEATH [None]
  - EPISTAXIS [None]
